FAERS Safety Report 6635327 (Version 11)
Quarter: 2012Q4

REPORT INFORMATION
  Report Type: 
  Country: US (occurrence: US)
  Receive Date: 20080508
  Receipt Date: 20120907
  Transmission Date: 20130627
  Serious: Yes (Hospitalization, Other)
  Sender: FDA-Public Use
  Company Number: PHEH2008US04279

PATIENT
  Age: 55 None
  Sex: Male
  Weight: 108.84 kg

DRUGS (30)
  1. ZOMETA [Suspect]
     Indication: NEOPLASM MALIGNANT
     Dosage: 4.0 mg, UNK
     Route: 042
     Dates: start: 20031007, end: 200409
  2. ADVIL [Concomitant]
  3. PERCOCET [Concomitant]
  4. AMOXICILLIN [Concomitant]
  5. TYLENOL [Concomitant]
  6. CHEMOTHERAPEUTICS NOS [Concomitant]
     Route: 048
  7. PLAVIX [Concomitant]
  8. ASPIRIN [Concomitant]
  9. DILAUDID [Concomitant]
     Indication: PAIN
  10. LOPRESSOR [Concomitant]
  11. GLYBURIDE [Concomitant]
  12. LIPITOR                                 /NET/ [Concomitant]
  13. PRILOSEC [Concomitant]
  14. LANTUS [Concomitant]
  15. SUTENT [Concomitant]
  16. GLIPIZIDE [Concomitant]
  17. METOPROLOL [Concomitant]
  18. FLAGYL [Concomitant]
  19. LEVAQUIN [Concomitant]
  20. PROTONIX ^PHARMACIA^ [Concomitant]
  21. MAALOX                                  /NET/ [Concomitant]
  22. OMEPRAZOLE [Concomitant]
  23. ASACOL [Concomitant]
     Indication: COLITIS
  24. LOVENOX [Concomitant]
  25. LASIX [Concomitant]
  26. INTERFERON ALFA-2A [Concomitant]
  27. ERYTHROMYCIN [Concomitant]
  28. PERIDEX [Concomitant]
     Dosage: 10 mg, BID
  29. RADIATION [Concomitant]
  30. MESALAMINE [Concomitant]

REACTIONS (68)
  - Cardiac failure congestive [Unknown]
  - Myocardial infarction [Unknown]
  - Coronary artery stenosis [Unknown]
  - Gastrointestinal angiodysplasia [Unknown]
  - Diarrhoea haemorrhagic [Unknown]
  - Osteonecrosis of jaw [Unknown]
  - Disability [Unknown]
  - Pain [Unknown]
  - Anxiety [Unknown]
  - Injury [Unknown]
  - Anhedonia [Unknown]
  - Renal failure [Unknown]
  - Renal cyst [Unknown]
  - Weight increased [Unknown]
  - Sinus tachycardia [Unknown]
  - Pancreatitis [Unknown]
  - Cholecystitis acute [Unknown]
  - Cholelithiasis [Unknown]
  - Biliary colic [Unknown]
  - Dehydration [Unknown]
  - Gastrooesophageal reflux disease [Unknown]
  - Abdominal pain upper [Unknown]
  - Eyelid cyst [Unknown]
  - Anaemia [Unknown]
  - Abscess oral [Unknown]
  - Toothache [Unknown]
  - Dyspnoea exertional [Unknown]
  - Orthopnoea [Unknown]
  - Vein disorder [Unknown]
  - Hiatus hernia [Unknown]
  - Vomiting [Unknown]
  - Papilloma [Unknown]
  - Seborrhoeic keratosis [Unknown]
  - Nystagmus [Unknown]
  - Psychiatric symptom [Unknown]
  - Hordeolum [Unknown]
  - Eyelid ptosis [Unknown]
  - Pallor [Unknown]
  - Asthenia [Unknown]
  - Fatigue [Unknown]
  - Metastases to liver [Unknown]
  - Metastases to lung [Unknown]
  - Inflammatory bowel disease [Unknown]
  - Atelectasis [Unknown]
  - Pulmonary mass [Unknown]
  - Adrenal mass [Unknown]
  - Osteoarthritis [Unknown]
  - Hepatic steatosis [Unknown]
  - Pleural fibrosis [Unknown]
  - Diverticulum [Unknown]
  - Rib fracture [Unknown]
  - Emphysema [Unknown]
  - Osteolysis [Unknown]
  - Lymphadenopathy [Unknown]
  - Pulmonary artery dilatation [Unknown]
  - Pulmonary arterial hypertension [Unknown]
  - Hypoaesthesia [Unknown]
  - Osteitis [Unknown]
  - Pain in jaw [Recovering/Resolving]
  - Pneumonia [Unknown]
  - Osteosclerosis [Unknown]
  - Ejection fraction decreased [Unknown]
  - Pleural effusion [Unknown]
  - Osteomyelitis [Unknown]
  - Actinomyces test positive [Unknown]
  - Prostatic calcification [Unknown]
  - Osteopenia [Unknown]
  - Chronic obstructive pulmonary disease [Unknown]
